FAERS Safety Report 9493457 (Version 1)
Quarter: 2013Q3

REPORT INFORMATION
  Report Type: Spontaneous
  Country: US (occurrence: US)
  Receive Date: 20130902
  Receipt Date: 20130902
  Transmission Date: 20140515
  Serious: Yes (Death, Other)
  Sender: FDA-Public Use
  Company Number: US-PFIZER INC-2013249457

PATIENT
  Sex: Male

DRUGS (1)
  1. XALKORI [Suspect]
     Indication: LUNG NEOPLASM MALIGNANT
     Dosage: 250 MG, EVERY 12 HOURS
     Route: 048
     Dates: start: 20130731, end: 201308

REACTIONS (5)
  - Disease progression [Fatal]
  - Lung neoplasm malignant [Fatal]
  - Pulmonary oedema [Unknown]
  - Hypertension [Unknown]
  - Dysphagia [Unknown]
